FAERS Safety Report 7510361-2 (Version None)
Quarter: 2011Q2

REPORT INFORMATION
  Report Type: 
  Country: None (occurrence: None)
  Receive Date: 20110527
  Receipt Date: 20110519
  Transmission Date: 20111010
  Serious: Yes (Life-Threatening)
  Sender: FDA-Public Use
  Company Number: US-GENENTECH-316371

PATIENT
  Sex: Male
  Weight: 76.3 kg

DRUGS (15)
  1. PROAIR HFA [Concomitant]
     Indication: WHEEZING
  2. LUNESTA [Concomitant]
     Indication: INSOMNIA
     Dosage: 3 MG, QD
     Route: 048
  3. PROAIR HFA [Concomitant]
     Indication: ASTHMA
     Dosage: 2 PUFF, PRN
     Route: 055
  4. FLOVENT [Concomitant]
     Indication: ASTHMA
     Dosage: 110 A?G, BID
     Route: 055
  5. ADVAIR DISKUS 100/50 [Concomitant]
     Indication: ASTHMA
     Dosage: UNK
     Route: 055
  6. CALCIUM CARBONATE [Concomitant]
     Indication: PRODUCT USED FOR UNKNOWN INDICATION
     Dosage: UNK
     Route: 048
  7. PROTONIX [Concomitant]
     Indication: GASTROOESOPHAGEAL REFLUX DISEASE
     Dosage: 80 MG, QD
     Route: 048
  8. PROTONIX [Concomitant]
     Indication: ULCER HAEMORRHAGE
  9. XOPENEX [Concomitant]
     Indication: WHEEZING
  10. XOLAIR [Suspect]
     Indication: ASTHMA
     Dosage: 300 MG, Q4W
     Route: 058
     Dates: start: 20110406, end: 20110406
  11. ZYFLO [Concomitant]
     Indication: ASTHMA
     Dosage: UNK
     Route: 048
  12. XYZAL [Concomitant]
     Indication: RHINITIS ALLERGIC
     Dosage: UNK
     Route: 048
  13. MICARDIS [Concomitant]
     Indication: HYPERTENSION
     Dosage: 40 MG, QD
     Route: 048
  14. XOPENEX [Concomitant]
     Indication: ASTHMA
     Dosage: 1.25 MG, PRN
     Route: 055
  15. ACETAMINOPHEN [Concomitant]
     Indication: PRODUCT USED FOR UNKNOWN INDICATION
     Dosage: UNK
     Route: 048

REACTIONS (4)
  - EYELID OEDEMA [None]
  - URTICARIA [None]
  - ANAPHYLACTIC REACTION [None]
  - EYELIDS PRURITUS [None]
